FAERS Safety Report 20094404 (Version 1)
Quarter: 2021Q4

REPORT INFORMATION
  Report Type: Spontaneous
  Country: GB (occurrence: GB)
  Receive Date: 20211122
  Receipt Date: 20211122
  Transmission Date: 20220303
  Serious: Yes (Hospitalization)
  Sender: FDA-Public Use
  Company Number: None

PATIENT
  Sex: Male

DRUGS (3)
  1. SPIRONOLACTONE [Suspect]
     Active Substance: SPIRONOLACTONE
     Dosage: 1 DOSAGE FORMS DAILY; 100MG, IN THE MORNING
  2. BACLOFEN [Concomitant]
     Active Substance: BACLOFEN
     Dosage: 3 DOSAGE FORMS DAILY;  10MG
  3. MIRTAZAPINE [Concomitant]
     Active Substance: MIRTAZAPINE
     Dosage: 1 DOSAGE FORMS DAILY; AT NIGHT, 30MG

REACTIONS (1)
  - Rash [Recovered/Resolved]
